FAERS Safety Report 17144934 (Version 1)
Quarter: 2019Q4

REPORT INFORMATION
  Report Type: Spontaneous
  Country: US (occurrence: US)
  Receive Date: 20191212
  Receipt Date: 20191212
  Transmission Date: 20200122
  Serious: No
  Sender: FDA-Public Use
  Company Number: US-NOVEN PHARMACEUTICALS, INC.-US2019000424

PATIENT

DRUGS (3)
  1. MINIVELLE [Suspect]
     Active Substance: ESTRADIOL
     Indication: HOT FLUSH
     Dosage: 0.1 MG, UNKNOWN
     Route: 062
     Dates: start: 201905, end: 20190922
  2. MINIVELLE [Suspect]
     Active Substance: ESTRADIOL
     Indication: NIGHT SWEATS
  3. ENCELAX [Concomitant]

REACTIONS (9)
  - Therapeutic product effect incomplete [Recovered/Resolved]
  - Product adhesion issue [Recovered/Resolved]
  - Application site erosion [Unknown]
  - Application site erythema [Unknown]
  - Product administered at inappropriate site [Recovered/Resolved]
  - Diarrhoea [Unknown]
  - Hyperhidrosis [Unknown]
  - Hot flush [Unknown]
  - Application site irritation [Unknown]

NARRATIVE: CASE EVENT DATE: 2019
